FAERS Safety Report 16922642 (Version 1)
Quarter: 2019Q4

REPORT INFORMATION
  Report Type: Spontaneous
  Country: DE (occurrence: DE)
  Receive Date: 20191016
  Receipt Date: 20191016
  Transmission Date: 20200122
  Serious: Yes (Other)
  Sender: FDA-Public Use
  Company Number: DE-TEVA-670459GER

PATIENT
  Age: 28 Year
  Sex: Female
  Weight: 90 kg

DRUGS (1)
  1. CABERGOLIN [Suspect]
     Active Substance: CABERGOLINE
     Indication: RESTLESS LEGS SYNDROME
     Dosage: 2 MILLIGRAM DAILY;
     Route: 048

REACTIONS (3)
  - Suppressed lactation [Not Recovered/Not Resolved]
  - Maternal exposure during pregnancy [Unknown]
  - Normal newborn [Unknown]
